FAERS Safety Report 5130304-9 (Version None)
Quarter: 2006Q4

REPORT INFORMATION
  Report Type: 
  Country: None (occurrence: None)
  Receive Date: 20061019
  Receipt Date: 20061012
  Transmission Date: 20070319
  Serious: Yes (Other)
  Sender: FDA-Public Use
  Company Number: 2006UW19903

PATIENT
  Age: 53 Year
  Sex: Female

DRUGS (3)
  1. TENORMIN [Suspect]
     Indication: HYPERTENSION
     Route: 048
  2. TENORMIN [Suspect]
     Route: 048
  3. HYDROCHLOROTHIAZIDE [Concomitant]

REACTIONS (2)
  - ALOPECIA [None]
  - PARAESTHESIA [None]
